FAERS Safety Report 9966646 (Version 1)
Quarter: 2014Q1

REPORT INFORMATION
  Report Type: Report from Study
  Country: US (occurrence: US)
  Receive Date: 20140305
  Receipt Date: 20140305
  Transmission Date: 20141002
  Serious: No
  Sender: FDA-Public Use
  Company Number: US-ABBVIE-13P-163-1122810-00

PATIENT
  Age: 34 Year
  Sex: Female

DRUGS (5)
  1. HUMIRA [Suspect]
     Indication: COLITIS ULCERATIVE
     Dates: start: 20130516
  2. 6-MP [Concomitant]
     Indication: COLITIS ULCERATIVE
     Dosage: 50 MG DAILY
  3. ASACOL [Concomitant]
     Indication: COLITIS ULCERATIVE
  4. CLONAZEPAM [Concomitant]
     Indication: ANXIETY
  5. AMBIEN [Concomitant]
     Indication: INSOMNIA

REACTIONS (8)
  - Fatigue [Recovering/Resolving]
  - Myalgia [Recovering/Resolving]
  - Asthenia [Recovering/Resolving]
  - Headache [Recovering/Resolving]
  - Sneezing [Recovering/Resolving]
  - Dehydration [Recovering/Resolving]
  - Cystitis [Recovering/Resolving]
  - Device malfunction [Recovering/Resolving]
